FAERS Safety Report 21374666 (Version 1)
Quarter: 2022Q3

REPORT INFORMATION
  Report Type: Spontaneous
  Country: DE (occurrence: DE)
  Receive Date: 20220926
  Receipt Date: 20220926
  Transmission Date: 20221027
  Serious: No
  Sender: FDA-Public Use
  Company Number: DE-HORMOSAN PHARMA GMBH-2022-11345

PATIENT
  Sex: Female
  Weight: 94 kg

DRUGS (4)
  1. ETHINYL ESTRADIOL\LEVONORGESTREL [Suspect]
     Active Substance: ETHINYL ESTRADIOL\LEVONORGESTREL
     Indication: Product used for unknown indication
     Dosage: 1 DOSAGE FORM, QD (1 TABLET PER DAY)
     Route: 065
     Dates: start: 202205
  2. COMIRNATY [Concomitant]
     Active Substance: TOZINAMERAN
     Indication: Product used for unknown indication
     Dosage: UNK, FIRST DOSE
     Route: 065
     Dates: start: 202105, end: 202105
  3. COMIRNATY [Concomitant]
     Active Substance: TOZINAMERAN
     Dosage: UNK, SECOND DOSE
     Route: 065
     Dates: start: 202110, end: 202110
  4. COMIRNATY [Concomitant]
     Active Substance: TOZINAMERAN
     Dosage: UNK, THIRD DOSE
     Route: 065
     Dates: start: 20220614, end: 20220614

REACTIONS (5)
  - Weight increased [Not Recovered/Not Resolved]
  - Muscle spasms [Recovered/Resolved]
  - Headache [Not Recovered/Not Resolved]
  - Abdominal pain [Not Recovered/Not Resolved]
  - Dizziness [Not Recovered/Not Resolved]

NARRATIVE: CASE EVENT DATE: 20220501
